FAERS Safety Report 25669444 (Version 2)
Quarter: 2025Q3

REPORT INFORMATION
  Report Type: Spontaneous
  Country: US (occurrence: US)
  Receive Date: 20250812
  Receipt Date: 20250905
  Transmission Date: 20251021
  Serious: No
  Sender: APOTEX
  Company Number: US-APOTEX-2025AP010821

PATIENT
  Sex: Female

DRUGS (1)
  1. AZELASTINE HYDROCHLORIDE [Suspect]
     Active Substance: AZELASTINE HYDROCHLORIDE
     Indication: Product used for unknown indication
     Dosage: 2 GTT DROPS, BID
     Route: 047

REACTIONS (2)
  - Product dose omission issue [Unknown]
  - Product delivery mechanism issue [Unknown]
